FAERS Safety Report 22623509 (Version 1)
Quarter: 2023Q2

REPORT INFORMATION
  Report Type: Spontaneous
  Country: CN (occurrence: CN)
  Receive Date: 20230621
  Receipt Date: 20230621
  Transmission Date: 20230721
  Serious: Yes (Other)
  Sender: FDA-Public Use
  Company Number: None

PATIENT
  Age: 47 Year
  Sex: Female
  Weight: 68 kg

DRUGS (9)
  1. IFOSFAMIDE [Suspect]
     Active Substance: IFOSFAMIDE
     Indication: Uterine leiomyosarcoma
     Dosage: 3 G, QD, D1
     Route: 041
     Dates: start: 20230321, end: 20230321
  2. IFOSFAMIDE [Suspect]
     Active Substance: IFOSFAMIDE
     Indication: Neoplasm
     Dosage: 2 G, QD, D2-D3
     Route: 041
     Dates: start: 20230322, end: 20230323
  3. IFOSFAMIDE [Suspect]
     Active Substance: IFOSFAMIDE
     Indication: Chemotherapy
  4. EPIRUBICIN HYDROCHLORIDE [Suspect]
     Active Substance: EPIRUBICIN HYDROCHLORIDE
     Indication: Uterine leiomyosarcoma
     Dosage: 110 MG, QD, D1
     Route: 041
     Dates: start: 20230321, end: 20230321
  5. EPIRUBICIN HYDROCHLORIDE [Suspect]
     Active Substance: EPIRUBICIN HYDROCHLORIDE
     Indication: Neoplasm
  6. EPIRUBICIN HYDROCHLORIDE [Suspect]
     Active Substance: EPIRUBICIN HYDROCHLORIDE
     Indication: Chemotherapy
  7. CISPLATIN [Suspect]
     Active Substance: CISPLATIN
     Indication: Uterine leiomyosarcoma
     Dosage: 30 MG, QD, D1-D3
     Route: 041
     Dates: start: 20230321, end: 20230323
  8. CISPLATIN [Suspect]
     Active Substance: CISPLATIN
     Indication: Neoplasm
  9. CISPLATIN [Suspect]
     Active Substance: CISPLATIN
     Indication: Chemotherapy

REACTIONS (3)
  - Feeding disorder [Recovering/Resolving]
  - Nausea [Recovering/Resolving]
  - Vomiting [Recovering/Resolving]

NARRATIVE: CASE EVENT DATE: 20230324
